FAERS Safety Report 5091637-8 (Version None)
Quarter: 2006Q3

REPORT INFORMATION
  Report Type: 
  Country: None (occurrence: None)
  Receive Date: 20060829
  Receipt Date: 20050126
  Transmission Date: 20061208
  Serious: Yes (Death)
  Sender: FDA-Public Use
  Company Number: US-ABBOTT-05P-163-0288304-00

PATIENT
  Age: 32 Year
  Sex: Male

DRUGS (10)
  1. RITONAVIR SOFT GELATIN CAPSULES [Suspect]
     Indication: HIV INFECTION
     Route: 048
     Dates: start: 20030821, end: 20031210
  2. AMPRENAVIR [Concomitant]
     Indication: HIV INFECTION
     Route: 048
     Dates: start: 20030821, end: 20031210
  3. LAMIVUDINE [Concomitant]
     Indication: HIV INFECTION
     Dates: start: 20010701, end: 20040210
  4. DIDANOSINE [Concomitant]
     Indication: HIV INFECTION
     Dates: start: 20030821, end: 20040210
  5. ENFUVIRTIDE [Concomitant]
     Indication: HIV INFECTION
     Dates: start: 20030821, end: 20040210
  6. TENOFOVIR [Concomitant]
     Indication: HIV INFECTION
     Dates: start: 20010701, end: 20040210
  7. BACTRIM [Concomitant]
     Indication: PNEUMOCYSTIS JIROVECI PNEUMONIA
     Dates: start: 20010101
  8. TESTOSTERONE [Concomitant]
     Indication: HYPOGONADISM
  9. VALACYCLOVIR HCL [Concomitant]
     Indication: HERPES VIRUS INFECTION
     Dates: start: 19990101
  10. DRONABINOL [Concomitant]
     Indication: DECREASED APPETITE
     Dates: start: 20000101

REACTIONS (1)
  - DEATH [None]
